FAERS Safety Report 11227692 (Version 1)
Quarter: 2015Q2

REPORT INFORMATION
  Report Type: Spontaneous
  Country: US (occurrence: US)
  Receive Date: 20150630
  Receipt Date: 20150630
  Transmission Date: 20150821
  Serious: No
  Sender: FDA-Public Use
  Company Number: US-009507513-1506USA015337

PATIENT
  Sex: Female
  Weight: 72.56 kg

DRUGS (1)
  1. NEXPLANON [Suspect]
     Active Substance: ETONOGESTREL
     Indication: CONTRACEPTION
     Dosage: IMPLANT IS IN LEFT ARM
     Route: 059
     Dates: start: 20131026

REACTIONS (2)
  - Implant site pain [Unknown]
  - Acne [Unknown]

NARRATIVE: CASE EVENT DATE: 2015
